FAERS Safety Report 4414440-8 (Version None)
Quarter: 2004Q3

REPORT INFORMATION
  Report Type: 
  Country: None (occurrence: None)
  Receive Date: 20040803
  Receipt Date: 20040728
  Transmission Date: 20050211
  Serious: Yes (Death, Hospitalization, Other)
  Sender: FDA-Public Use
  Company Number: US-MERCK-0407USA02375

PATIENT
  Age: 49 Year
  Sex: Male

DRUGS (9)
  1. TYLENOL [Concomitant]
     Route: 065
  2. LORTAB [Concomitant]
     Route: 065
  3. CIPRO [Concomitant]
     Route: 065
  4. FERROUS SULFATE CO TABLET [Concomitant]
     Route: 065
  5. COLACE [Concomitant]
     Route: 065
  6. METOPROLOL [Concomitant]
     Route: 065
  7. FLAGYL [Concomitant]
     Route: 065
  8. AQUAMEPHYTON [Suspect]
     Route: 042
     Dates: start: 20010119
  9. VITAMINS (UNSPECIFIED) [Concomitant]
     Route: 065

REACTIONS (2)
  - CARDIAC ARREST [None]
  - PULMONARY EMBOLISM [None]
